FAERS Safety Report 9720370 (Version 2)
Quarter: 2015Q1

REPORT INFORMATION
  Report Type: Spontaneous
  Country: US (occurrence: US)
  Receive Date: 20131129
  Receipt Date: 20150211
  Transmission Date: 20150721
  Serious: Yes (Hospitalization)
  Sender: FDA-Public Use
  Company Number: US-ROCHE-1306117

PATIENT
  Age: 78 Year
  Sex: Male

DRUGS (4)
  1. ERIVEDGE [Interacting]
     Active Substance: VISMODEGIB
     Route: 048
     Dates: start: 20130530, end: 20131112
  2. CICLOSPORIN [Interacting]
     Active Substance: CYCLOSPORINE
     Indication: PROPHYLAXIS AGAINST TRANSPLANT REJECTION
     Dosage: (MONOTHERAPY 75MG IN THE MORNING/50MG IN THE EVENING)
     Route: 065
  3. ERIVEDGE [Suspect]
     Active Substance: VISMODEGIB
     Indication: BASAL CELL CARCINOMA
     Route: 048
  4. ERIVEDGE [Interacting]
     Active Substance: VISMODEGIB
     Route: 065

REACTIONS (9)
  - Gastrointestinal haemorrhage [Recovered/Resolved]
  - Haemorrhoids [Unknown]
  - Alopecia [Unknown]
  - Drug interaction [Unknown]
  - Gastrointestinal perforation [Unknown]
  - Weight decreased [Unknown]
  - Muscle spasms [Unknown]
  - Decreased appetite [Unknown]
  - Fatigue [Unknown]

NARRATIVE: CASE EVENT DATE: 20131111
